FAERS Safety Report 25642129 (Version 1)
Quarter: 2025Q3

REPORT INFORMATION
  Report Type: Spontaneous
  Country: US (occurrence: US)
  Receive Date: 20250805
  Receipt Date: 20250805
  Transmission Date: 20251020
  Serious: No
  Sender: ELI LILLY AND COMPANY
  Company Number: US-ELI_LILLY_AND_COMPANY-US202507024794

PATIENT
  Age: 68 Year
  Sex: Female

DRUGS (3)
  1. EMGALITY [Suspect]
     Active Substance: GALCANEZUMAB-GNLM
     Indication: Product used for unknown indication
     Route: 065
  2. UBRELVY [Concomitant]
     Active Substance: UBROGEPANT
     Indication: Migraine
     Route: 065
  3. RIZATRIPTAN [Concomitant]
     Active Substance: RIZATRIPTAN
     Indication: Migraine
     Route: 065

REACTIONS (4)
  - Illness [Unknown]
  - Rheumatoid arthritis [Unknown]
  - Migraine [Unknown]
  - Cerebral disorder [Unknown]
